FAERS Safety Report 10011956 (Version 1)
Quarter: 2014Q1

REPORT INFORMATION
  Report Type: Spontaneous
  Country: None (occurrence: US)
  Receive Date: 20140314
  Receipt Date: 20140314
  Transmission Date: 20141002
  Serious: Yes (Other)
  Sender: FDA-Public Use
  Company Number: US-TEVA-468287USA

PATIENT
  Sex: 0

DRUGS (1)
  1. NUVIGIL [Suspect]

REACTIONS (2)
  - Swollen tongue [Recovered/Resolved]
  - Nausea [Recovered/Resolved]
